FAERS Safety Report 25127549 (Version 1)
Quarter: 2025Q1

REPORT INFORMATION
  Report Type: Spontaneous
  Country: JP (occurrence: JP)
  Receive Date: 20250327
  Receipt Date: 20250327
  Transmission Date: 20250409
  Serious: Yes (Other)
  Sender: EXELIXIS
  Company Number: JP-BRISTOL-MYERS SQUIBB COMPANY-BMS-2020-045152

PATIENT
  Age: 48 Year
  Sex: Female
  Weight: 52 kg

DRUGS (11)
  1. CABOMETYX [Suspect]
     Active Substance: CABOZANTINIB S-MALATE
     Indication: Renal cell carcinoma
     Dosage: 60 MG, QD
     Route: 048
     Dates: start: 20200717, end: 20200827
  2. CABOMETYX [Suspect]
     Active Substance: CABOZANTINIB S-MALATE
     Dosage: 40 MG, QD
     Route: 048
     Dates: start: 20200911, end: 20201008
  3. CABOMETYX [Suspect]
     Active Substance: CABOZANTINIB S-MALATE
     Dosage: 20 MG, QD
     Route: 048
     Dates: start: 20201009
  4. OPDIVO [Suspect]
     Active Substance: NIVOLUMAB
     Indication: Metastatic renal cell carcinoma
     Route: 041
     Dates: start: 20200424, end: 20200424
  5. OPDIVO [Suspect]
     Active Substance: NIVOLUMAB
     Dosage: 240 MG, QD
     Route: 041
     Dates: start: 20200515, end: 20200515
  6. OPDIVO [Suspect]
     Active Substance: NIVOLUMAB
     Dosage: 240?????
     Route: 041
     Dates: start: 20200605, end: 20200605
  7. OPDIVO [Suspect]
     Active Substance: NIVOLUMAB
     Dosage: 240 MG, QD
     Route: 041
     Dates: start: 20200626, end: 20200626
  8. YERVOY [Suspect]
     Active Substance: IPILIMUMAB
     Indication: Metastatic renal cell carcinoma
     Dosage: 1 MG/KG, QD
     Route: 041
     Dates: start: 20200515, end: 20200515
  9. YERVOY [Suspect]
     Active Substance: IPILIMUMAB
     Dosage: 1 MG/KG, QD
     Route: 041
     Dates: start: 20200605, end: 20200605
  10. YERVOY [Suspect]
     Active Substance: IPILIMUMAB
     Dosage: 1 MG/KG, QD
     Route: 041
     Dates: start: 20200626, end: 20200626
  11. YERVOY [Suspect]
     Active Substance: IPILIMUMAB
     Route: 041
     Dates: start: 20200424, end: 20200424

REACTIONS (13)
  - Pancytopenia [Recovered/Resolved]
  - Malignant neoplasm progression [Unknown]
  - Hypothyroidism [Not Recovered/Not Resolved]
  - Oedema peripheral [Not Recovered/Not Resolved]
  - Breast pain [Recovered/Resolved]
  - Hepatic function abnormal [Recovered/Resolved]
  - Tumour associated fever [Recovered/Resolved]
  - Alopecia [Not Recovered/Not Resolved]
  - Dyspnoea [Unknown]
  - Palmar-plantar erythrodysaesthesia syndrome [Recovered/Resolved]
  - Dysphonia [Recovered/Resolved]
  - Diarrhoea [Not Recovered/Not Resolved]
  - Myalgia [Recovered/Resolved]

NARRATIVE: CASE EVENT DATE: 20200605
